FAERS Safety Report 4621015-4 (Version None)
Quarter: 2005Q2

REPORT INFORMATION
  Report Type: 
  Country: None (occurrence: None)
  Receive Date: 20050317
  Receipt Date: 20050210
  Transmission Date: 20051028
  Serious: Yes (Other)
  Sender: FDA-Public Use
  Company Number: 2005030999

PATIENT
  Sex: Male

DRUGS (5)
  1. VFEND [Suspect]
     Indication: FUNGAL INFECTION
     Dosage: 600 MG (300 MG, 2 IN 1 D)
     Dates: start: 20040101
  2. NEURONTIN [Suspect]
     Indication: NEUROPATHY
     Dosage: ORAL
     Route: 048
     Dates: start: 20050101
  3. VANCOMYCIN [Concomitant]
  4. OXYCODONE [Concomitant]
  5. AMITRYPTYLINE [Concomitant]

REACTIONS (4)
  - DIFFICULTY IN WALKING [None]
  - PAIN IN EXTREMITY [None]
  - POLYNEUROPATHY [None]
  - TENDERNESS [None]
